FAERS Safety Report 9164929 (Version 1)
Quarter: 2013Q1

REPORT INFORMATION
  Report Type: Spontaneous
  Country: US (occurrence: None)
  Receive Date: 20130228
  Receipt Date: 20130228
  Transmission Date: 20140127
  Serious: Yes (Other)
  Sender: FDA-Public Use
  Company Number: ADR-2013W56019

PATIENT
  Age: 52 Year
  Sex: 0

DRUGS (2)
  1. SERTRALINE HCL [Suspect]
     Indication: DEPRESSION
  2. PAROXETINE TABLETS USP [Suspect]
     Indication: DEPRESSION
     Route: 048

REACTIONS (1)
  - Neuroleptic malignant syndrome [None]
